FAERS Safety Report 18738426 (Version 1)
Quarter: 2021Q1

REPORT INFORMATION
  Report Type: Spontaneous
  Country: CN (occurrence: CN)
  Receive Date: 20210114
  Receipt Date: 20210114
  Transmission Date: 20210419
  Serious: Yes (Other)
  Sender: FDA-Public Use
  Company Number: CN-ASTRAZENECA-2020SF24370

PATIENT
  Age: 51 Year
  Sex: Female

DRUGS (3)
  1. TAGRISSO [Suspect]
     Active Substance: OSIMERTINIB
     Indication: NON-SMALL CELL LUNG CANCER
     Route: 048
     Dates: start: 201910
  2. PACLITAXEL. [Concomitant]
     Active Substance: PACLITAXEL
  3. ALBUMIN [Concomitant]
     Active Substance: ALBUMIN HUMAN

REACTIONS (1)
  - Acquired gene mutation [Not Recovered/Not Resolved]

NARRATIVE: CASE EVENT DATE: 20200922
